FAERS Safety Report 10504597 (Version 1)
Quarter: 2014Q4

REPORT INFORMATION
  Report Type: Spontaneous
  Country: IT (occurrence: None)
  Receive Date: 20141006
  Receipt Date: 20141006
  Transmission Date: 20150528
  Serious: Yes (Death)
  Sender: FDA-Public Use
  Company Number: COR_00093_2014

PATIENT
  Sex: Female

DRUGS (2)
  1. CARBOPLATIN. [Suspect]
     Active Substance: CARBOPLATIN
     Indication: OVARIAN CANCER
     Dosage: 2 MG/ML PER MIN, GIVEN OVER 30 MIN ONCE EVERY WEEK, FOR 18 WEEKS
     Route: 042
  2. PACLITAXEL. [Suspect]
     Active Substance: PACLITAXEL
     Indication: OVARIAN CANCER
     Dosage: 1X/WEEK, 60MG/M2 ONCE EVERY WEEK GIVEN OVER 1 HOUR FOR 18 WEEKS
     Route: 042

REACTIONS (1)
  - Intestinal perforation [None]
